FAERS Safety Report 4993903-0 (Version None)
Quarter: 2006Q2

REPORT INFORMATION
  Report Type: 
  Country: None (occurrence: None)
  Receive Date: 20060503
  Receipt Date: 20060425
  Transmission Date: 20061013
  Serious: Yes (Death)
  Sender: FDA-Public Use
  Company Number: TAP2006Q00777

PATIENT
  Age: 81 Year
  Sex: Male

DRUGS (10)
  1. LUPRON DEPOT-3 [Suspect]
     Indication: PROSTATE CANCER
     Dosage: 22.5 MG, 1 IN 1 M, INTRAMUSCLAR
     Route: 030
     Dates: start: 20050414
  2. FUROSEMIDE [Concomitant]
  3. DILAUDID [Concomitant]
  4. PANTOLOC (PANTOPRAZOLE) [Concomitant]
  5. SOTALOL HCL [Concomitant]
  6. DURAGESIC-100 [Concomitant]
  7. NITRO PATCH (GLYCERYL TRINITRATE) [Concomitant]
  8. MACROBID [Concomitant]
  9. GRAVOL TAB [Concomitant]
  10. BISACODYL (BISACODYL) [Concomitant]

REACTIONS (1)
  - DEATH [None]
